FAERS Safety Report 8810218 (Version 1)
Quarter: 2012Q4

REPORT INFORMATION
  Report Type: 
  Country: US (occurrence: US)
  Receive Date: 20120926
  Receipt Date: 20120926
  Transmission Date: 20130627
  Serious: Yes (Hospitalization, Other)
  Sender: FDA-Public Use
  Company Number: US-009507513-2012SP010347

PATIENT
  Sex: Female

DRUGS (5)
  1. PEG-INTRON [Suspect]
     Indication: HEPATITIS C
     Dosage: UNK UNK, Unknown
     Route: 065
     Dates: start: 20110911, end: 20111109
  2. REBETOL [Suspect]
     Indication: HEPATITIS C
     Dosage: UNK
     Dates: start: 20110911, end: 20111109
  3. VICTRELIS [Suspect]
     Indication: HEPATITIS C
     Dosage: UNK UNK, Unknown
     Route: 065
     Dates: start: 20111011, end: 20111109
  4. LASIX (FUROSEMIDE) [Concomitant]
     Indication: ASCITES
     Dosage: UNK UNK, Unknown
     Route: 065
  5. SPIRONOLACTONE [Concomitant]
     Indication: ASCITES
     Dosage: UNK UNK, Unknown
     Route: 065

REACTIONS (11)
  - Bone marrow disorder [Unknown]
  - Epistaxis [Unknown]
  - Anaemia [Unknown]
  - Anaemia [Unknown]
  - Amnesia [Unknown]
  - Vomiting [Unknown]
  - Malaise [Unknown]
  - Rash [Unknown]
  - Nausea [Unknown]
  - Pyrexia [Unknown]
  - Abdominal pain upper [Unknown]
